FAERS Safety Report 4464913-7 (Version None)
Quarter: 2004Q4

REPORT INFORMATION
  Report Type: 
  Country: None (occurrence: None)
  Receive Date: 20041004
  Receipt Date: 20040216
  Transmission Date: 20050328
  Serious: No
  Sender: FDA-Public Use
  Company Number: 361813

PATIENT
  Age: 82 Year
  Sex: Male

DRUGS (10)
  1. COREG [Suspect]
     Dosage: 12.5MG TWICE PER DAY
     Route: 048
  2. BUMEX [Concomitant]
  3. ZAROXOLYN [Concomitant]
  4. ALLOPURINOL [Concomitant]
  5. POTASSIUM [Concomitant]
  6. MULTIVITAMIN [Concomitant]
  7. GLUCOSAMINE [Concomitant]
  8. COUMADIN [Concomitant]
  9. CAPTOPRIL [Concomitant]
  10. NITRO PATCH [Concomitant]

REACTIONS (8)
  - DIARRHOEA [None]
  - DRY MOUTH [None]
  - KERATOCONJUNCTIVITIS SICCA [None]
  - NAIL DISCOLOURATION [None]
  - ONYCHORRHEXIS [None]
  - PARAESTHESIA [None]
  - PERIPHERAL COLDNESS [None]
  - POLLAKIURIA [None]
